FAERS Safety Report 8287530-X (Version None)
Quarter: 2012Q2

REPORT INFORMATION
  Report Type: 
  Country: None (occurrence: None)
  Receive Date: 20120411
  Receipt Date: 20120327
  Transmission Date: 20120825
  Serious: Yes (Hospitalization)
  Sender: FDA-Public Use
  Company Number: B0792122A

PATIENT
  Sex: Male

DRUGS (5)
  1. DEXAMETHASONE [Concomitant]
  2. CEFUROXIME SODIUM [Suspect]
     Indication: PHARYNGITIS
     Dosage: ( TWICE PER DAY/ INTRAVENOUS
     Route: 042
     Dates: start: 20120213, end: 20120214
  3. ASCORBIC ACID [Concomitant]
  4. GENTAMICIN SULFATE [Concomitant]
  5. CHYMOTRYPSIN [Concomitant]

REACTIONS (4)
  - THROMBOCYTOPENIA [None]
  - GRANULOCYTOPENIA [None]
  - MOUTH ULCERATION [None]
  - URINE KETONE BODY PRESENT [None]
